FAERS Safety Report 21931714 (Version 1)
Quarter: 2023Q1

REPORT INFORMATION
  Report Type: Spontaneous
  Country: JP (occurrence: JP)
  Receive Date: 20230131
  Receipt Date: 20230131
  Transmission Date: 20230417
  Serious: Yes (Death, Life-Threatening, Hospitalization)
  Sender: FDA-Public Use
  Company Number: JP-Merck Healthcare KGaA-9379372

PATIENT
  Age: 66 Year
  Sex: Female
  Weight: 64 kg

DRUGS (12)
  1. ERBITUX [Suspect]
     Active Substance: CETUXIMAB
     Indication: Ear neoplasm malignant
     Dosage: 670 MG, UNKNOWN
     Route: 041
     Dates: start: 20221005
  2. ERBITUX [Suspect]
     Active Substance: CETUXIMAB
     Dosage: 420 MG, UNKNOWN
     Route: 041
     Dates: start: 20221012, end: 20221012
  3. PACLITAXEL [Suspect]
     Active Substance: PACLITAXEL
     Indication: Ear neoplasm malignant
     Dosage: UNK UNK, UNKNOWN
     Route: 041
     Dates: start: 20221005, end: 20221012
  4. KEYTRUDA [Suspect]
     Active Substance: PEMBROLIZUMAB
     Indication: Ear neoplasm malignant
     Dosage: 200 MG, UNKNOWN
     Route: 041
     Dates: start: 20220531, end: 20220914
  5. VONOPRAZAN FUMARATE [Concomitant]
     Active Substance: VONOPRAZAN FUMARATE
     Indication: Product used for unknown indication
     Dosage: UNK
     Route: 048
  6. JANUVIA [Concomitant]
     Active Substance: SITAGLIPTIN PHOSPHATE
     Indication: Product used for unknown indication
     Dosage: UNK
     Route: 048
  7. URINORM [BENZBROMARONE] [Concomitant]
     Indication: Product used for unknown indication
     Dosage: UNK
     Route: 048
  8. EZETIMIBE [Concomitant]
     Active Substance: EZETIMIBE
     Indication: Product used for unknown indication
     Dosage: UNK
     Route: 048
  9. MAGNESIUM OXIDE [Concomitant]
     Active Substance: MAGNESIUM OXIDE
     Indication: Product used for unknown indication
     Dosage: UNK
     Route: 048
  10. CALONAL [Concomitant]
     Active Substance: ACETAMINOPHEN
     Indication: Pyrexia
     Dosage: UNK
     Route: 048
  11. CALONAL [Concomitant]
     Active Substance: ACETAMINOPHEN
     Indication: Pain
     Dosage: UNK
  12. CEFDITOREN PIVOXIL [Concomitant]
     Active Substance: CEFDITOREN PIVOXIL
     Indication: Product used for unknown indication
     Dosage: UNK
     Route: 065
     Dates: start: 20221019, end: 20221021

REACTIONS (8)
  - Respiratory failure [Fatal]
  - Cardiac failure [Not Recovered/Not Resolved]
  - Acute respiratory distress syndrome [Not Recovered/Not Resolved]
  - Vasculitis [Not Recovered/Not Resolved]
  - Sepsis [Not Recovered/Not Resolved]
  - Interstitial lung disease [Not Recovered/Not Resolved]
  - Infection [Not Recovered/Not Resolved]
  - Off label use [Unknown]

NARRATIVE: CASE EVENT DATE: 20221021
